FAERS Safety Report 12110826 (Version 1)
Quarter: 2016Q1

REPORT INFORMATION
  Report Type: Spontaneous
  Country: US (occurrence: US)
  Receive Date: 20160224
  Receipt Date: 20160224
  Transmission Date: 20160526
  Serious: No
  Sender: FDA-Public Use
  Company Number: US-JAZZ-2012-613

PATIENT
  Age: 49 Year
  Sex: Female
  Weight: 56.69 kg

DRUGS (15)
  1. GABAPENTIN. [Concomitant]
     Active Substance: GABAPENTIN
  2. PRIALT [Suspect]
     Active Substance: ZICONOTIDE ACETATE
     Indication: PAIN
  3. SUFENTANIL CITRATE. [Suspect]
     Active Substance: SUFENTANIL CITRATE
     Indication: PAIN
  4. BUPIVACAINE HYDROCHLORIDE. [Suspect]
     Active Substance: BUPIVACAINE HYDROCHLORIDE
     Indication: MUSCLE SPASTICITY
     Dosage: 0.67 MG, ONCE/HOUR
     Route: 037
  5. MORPHINE SULFATE. [Concomitant]
     Active Substance: MORPHINE SULFATE
     Dosage: 15 MG, Q4H, PRN
     Route: 048
  6. PRIALT [Suspect]
     Active Substance: ZICONOTIDE ACETATE
     Indication: POST LAMINECTOMY SYNDROME
     Dosage: UNK ?G, QH
     Route: 037
     Dates: start: 20121105
  7. BUPIVACAINE HYDROCHLORIDE. [Suspect]
     Active Substance: BUPIVACAINE HYDROCHLORIDE
     Indication: PAIN
  8. BACLOFEN. [Suspect]
     Active Substance: BACLOFEN
     Indication: POST LAMINECTOMY SYNDROME
  9. SUFENTANIL CITRATE. [Suspect]
     Active Substance: SUFENTANIL CITRATE
     Indication: MUSCLE SPASTICITY
     Dosage: 0.67 MCG, ONCE/HOUR
     Route: 037
  10. PRIALT [Suspect]
     Active Substance: ZICONOTIDE ACETATE
     Indication: MUSCLE SPASTICITY
     Dosage: 0.18 MCG, QH
     Route: 037
     Dates: start: 20120912, end: 20121105
  11. BUPIVACAINE HYDROCHLORIDE. [Suspect]
     Active Substance: BUPIVACAINE HYDROCHLORIDE
     Indication: POST LAMINECTOMY SYNDROME
  12. BACLOFEN. [Suspect]
     Active Substance: BACLOFEN
     Indication: MUSCLE SPASTICITY
     Dosage: 20 MCG, ONCE/HOUR
     Route: 037
  13. SUFENTANIL CITRATE. [Suspect]
     Active Substance: SUFENTANIL CITRATE
     Indication: POST LAMINECTOMY SYNDROME
  14. BACLOFEN. [Suspect]
     Active Substance: BACLOFEN
     Indication: PAIN
  15. SKELAXIN [Concomitant]
     Active Substance: METAXALONE
     Dosage: 400 MG, BID
     Route: 048

REACTIONS (29)
  - Fatigue [Unknown]
  - Dizziness [Unknown]
  - Sciatica [Unknown]
  - Cough [Unknown]
  - Device issue [Recovered/Resolved]
  - Weight decreased [Unknown]
  - Menstrual discomfort [Unknown]
  - Sleep disorder [Unknown]
  - Libido decreased [Unknown]
  - Bladder disorder [Unknown]
  - Hair disorder [Unknown]
  - Arthropathy [Unknown]
  - Headache [Unknown]
  - Nasal congestion [Unknown]
  - Dyspepsia [Unknown]
  - Contusion [Unknown]
  - Joint swelling [Unknown]
  - Joint stiffness [Unknown]
  - Drug withdrawal syndrome [Unknown]
  - Underdose [Unknown]
  - Weight increased [Unknown]
  - Pollakiuria [Unknown]
  - Peripheral swelling [Unknown]
  - Asthenia [Unknown]
  - Vision blurred [Unknown]
  - Nausea [Unknown]
  - Pain [Unknown]
  - Muscle spasms [Unknown]
  - Anxiety [Unknown]

NARRATIVE: CASE EVENT DATE: 2012
